FAERS Safety Report 5723691-1 (Version None)
Quarter: 2008Q2

REPORT INFORMATION
  Report Type: 
  Country: None (occurrence: None)
  Receive Date: 20080430
  Receipt Date: 20080413
  Transmission Date: 20081010
  Serious: Yes (Other)
  Sender: FDA-Public Use
  Company Number: US-BAYER-200811650BCC

PATIENT
  Sex: Female

DRUGS (1)
  1. ASPIRIN [Suspect]
     Indication: JUVENILE ARTHRITIS
     Dosage: TOTAL DAILY DOSE: 2600 MG  UNIT DOSE: 325 MG
     Route: 048

REACTIONS (1)
  - LUNG DISORDER [None]
